FAERS Safety Report 13355703 (Version 1)
Quarter: 2017Q1

REPORT INFORMATION
  Report Type: Spontaneous
  Country: US (occurrence: US)
  Receive Date: 20170321
  Receipt Date: 20170321
  Transmission Date: 20170429
  Serious: No
  Sender: FDA-Public Use
  Company Number: US-BAUSCH-BL-2016-006259

PATIENT
  Age: 43 Year
  Sex: Female

DRUGS (2)
  1. RENOVA [Suspect]
     Active Substance: TRETINOIN
     Indication: ACNE
     Route: 061
     Dates: start: 20151205
  2. RENOVA [Suspect]
     Active Substance: TRETINOIN
     Indication: THERAPEUTIC SKIN CARE TOPICAL
     Dosage: REDUCED TO USE THE PRODUCT ONLY 2 TO 3 TIMES A WEEK
     Route: 061
     Dates: end: 20160104

REACTIONS (6)
  - Burning sensation [Recovered/Resolved]
  - Erythema [Recovered/Resolved]
  - Pruritus [Recovered/Resolved]
  - Urticaria [Recovered/Resolved]
  - Skin exfoliation [Recovered/Resolved]
  - Dry skin [Recovered/Resolved]

NARRATIVE: CASE EVENT DATE: 20160104
